FAERS Safety Report 4875169-5 (Version None)
Quarter: 2006Q1

REPORT INFORMATION
  Report Type: 
  Country: None (occurrence: None)
  Receive Date: 20060104
  Receipt Date: 20051222
  Transmission Date: 20060701
  Serious: Yes (Other)
  Sender: FDA-Public Use
  Company Number: 2005162596

PATIENT
  Age: 44 Year
  Sex: Female

DRUGS (6)
  1. ZMAX [Suspect]
     Indication: BRONCHITIS
     Dates: start: 20051001
  2. BENAZEPRIL HCL [Concomitant]
  3. ESTRADIOL [Concomitant]
  4. ZOLOFT [Concomitant]
  5. OMEPRAZOLE [Concomitant]
  6. ADVAIR DISKUS 100/50 [Concomitant]

REACTIONS (8)
  - DYSPNOEA [None]
  - FEELING HOT [None]
  - LOSS OF CONSCIOUSNESS [None]
  - NAUSEA [None]
  - NERVOUSNESS [None]
  - THERAPY NON-RESPONDER [None]
  - VISION BLURRED [None]
  - VOMITING [None]
